FAERS Safety Report 14452740 (Version 2)
Quarter: 2019Q2

REPORT INFORMATION
  Report Type: Spontaneous
  Country: US (occurrence: US)
  Receive Date: 20180129
  Receipt Date: 20190531
  Transmission Date: 20190711
  Serious: Yes (Hospitalization)
  Sender: FDA-Public Use
  Company Number: US-JNJFOC-20180131284

PATIENT
  Age: 60 Year
  Sex: Female

DRUGS (1)
  1. INVOKANA [Suspect]
     Active Substance: CANAGLIFLOZIN
     Indication: TYPE 2 DIABETES MELLITUS
     Route: 048
     Dates: start: 20161208

REACTIONS (4)
  - Osteomyelitis [Unknown]
  - Cellulitis [Unknown]
  - Toe amputation [Unknown]
  - Diabetic ulcer [Unknown]

NARRATIVE: CASE EVENT DATE: 20170301
